FAERS Safety Report 19449187 (Version 9)
Quarter: 2021Q4

REPORT INFORMATION
  Report Type: Spontaneous
  Country: US (occurrence: US)
  Receive Date: 20210622
  Receipt Date: 20211221
  Transmission Date: 20220303
  Serious: Yes (Other)
  Sender: FDA-Public Use
  Company Number: US-GLAXOSMITHKLINE-US2021AMR134350

PATIENT
  Sex: Female

DRUGS (5)
  1. ZEJULA [Suspect]
     Active Substance: NIRAPARIB
     Indication: Ovarian cancer
     Dosage: 300 MG, QD
  2. ZEJULA [Suspect]
     Active Substance: NIRAPARIB
     Dosage: 200 MG, QD
  3. ZEJULA [Suspect]
     Active Substance: NIRAPARIB
     Dosage: UNK
  4. ZEJULA [Suspect]
     Active Substance: NIRAPARIB
     Dosage: 200 MG, QD
  5. IRON [Concomitant]
     Active Substance: IRON
     Indication: Product used for unknown indication
     Dosage: UNK

REACTIONS (20)
  - Malignant neoplasm progression [Unknown]
  - Tremor [Not Recovered/Not Resolved]
  - Sleep disorder [Unknown]
  - Nausea [Recovering/Resolving]
  - Fall [Unknown]
  - Asthenia [Recovered/Resolved]
  - Feeding disorder [Recovered/Resolved]
  - Musculoskeletal pain [Unknown]
  - Decreased appetite [Not Recovered/Not Resolved]
  - Platelet count decreased [Recovered/Resolved]
  - Neutrophil count decreased [Unknown]
  - White blood cell count decreased [Not Recovered/Not Resolved]
  - Full blood count decreased [Unknown]
  - Chills [Not Recovered/Not Resolved]
  - Cerebral disorder [Unknown]
  - Anaemia [Unknown]
  - Fatigue [Unknown]
  - Eye contusion [Unknown]
  - Off label use [Unknown]
  - Inappropriate schedule of product administration [Unknown]
